FAERS Safety Report 12609960 (Version 3)
Quarter: 2016Q3

REPORT INFORMATION
  Report Type: Spontaneous
  Country: DE (occurrence: DE)
  Receive Date: 20160801
  Receipt Date: 20160831
  Transmission Date: 20161109
  Serious: Yes (Death, Hospitalization)
  Sender: FDA-Public Use
  Company Number: DE-AMGEN-DEUSP2016097743

PATIENT
  Sex: Male

DRUGS (19)
  1. CYCLOPHOSPHAMIDE. [Suspect]
     Active Substance: CYCLOPHOSPHAMIDE
     Indication: B-CELL LYMPHOMA
     Dosage: 1380 MG, 1 IN 1 D
     Route: 042
     Dates: start: 20160712
  2. AMPHOTERICIN B. [Concomitant]
     Active Substance: AMPHOTERICIN B
     Dosage: 10 MG, (1 IN 1 D)
     Route: 048
     Dates: start: 20160426
  3. PANTOPRAZOLE [Concomitant]
     Active Substance: PANTOPRAZOLE SODIUM
     Indication: ABDOMINAL PAIN UPPER
     Dosage: 20 MG, (1 IN 1 D)
     Route: 048
     Dates: start: 20160426
  4. MACROGOL 3350 W/POTASSIUM CHLORIDE [Concomitant]
     Indication: CONSTIPATION
     Dosage: UNK
     Route: 048
     Dates: start: 20160426
  5. TORASEMIDE [Concomitant]
     Active Substance: TORSEMIDE
     Indication: OEDEMA
     Dosage: 5 MG, 1 IN 1 D
     Route: 048
     Dates: start: 20160630
  6. DOXORUBICIN [Suspect]
     Active Substance: DOXORUBICIN
     Indication: B-CELL LYMPHOMA
     Dosage: 1 IN 1 D
     Route: 042
     Dates: start: 20160712
  7. VINCRISTINE [Suspect]
     Active Substance: VINCRISTINE
     Indication: B-CELL LYMPHOMA
     Dosage: 1 MG,1 IN 1 D
     Route: 042
     Dates: start: 20160712
  8. SULFAMETHOXAZOLE AND TRIMETHOPRIM [Concomitant]
     Active Substance: SULFAMETHOXAZOLE\TRIMETHOPRIM
     Dosage: 1920 MG (960 MG, 2 IN 1 D)
     Route: 048
     Dates: start: 20160525
  9. CIPROFLOXACIN. [Concomitant]
     Active Substance: CIPROFLOXACIN
     Dosage: 500 MG (250 MG, 2 IN 1 D)
     Route: 048
     Dates: start: 20160503
  10. RITUXIMAB [Suspect]
     Active Substance: RITUXIMAB
     Indication: B-CELL LYMPHOMA
     Dosage: 690 MG,1 IN 1 D FOR 1 DAY
     Route: 042
     Dates: start: 20160711
  11. NEBIVOLOL. [Concomitant]
     Active Substance: NEBIVOLOL
     Indication: TACHYCARDIA
     Dosage: 5 MG (2.5 MG, 2 IN 1 D)
     Route: 048
     Dates: start: 20160630
  12. PREDNISOLONE. [Suspect]
     Active Substance: PREDNISOLONE
     Indication: B-CELL LYMPHOMA
     Dosage: 425 MG, UNK, FOR 5 DAYS (LAST DOSE ON 15/JUL/2016)
     Route: 048
     Dates: start: 20160711
  13. ALLOPURINOL. [Concomitant]
     Active Substance: ALLOPURINOL
     Indication: HYPERURICAEMIA
     Dosage: 300 MG, (1 IN 1 D)
     Route: 048
     Dates: start: 20160426, end: 20160630
  14. FLUCONAZOLE. [Concomitant]
     Active Substance: FLUCONAZOLE
     Indication: CANDIDA INFECTION
     Dosage: 400 MG (200 MG, 2 IN 1 D)
     Route: 048
     Dates: start: 20160701
  15. KALIUMCHLORIDE [Concomitant]
     Indication: HYPOKALAEMIA
     Dosage: 1200 MG (600 MG, 2 IN 1 D)
     Route: 048
     Dates: start: 20160630
  16. PEGFILGRASTIM [Suspect]
     Active Substance: PEGFILGRASTIM
     Indication: B-CELL LYMPHOMA
     Dosage: 6 MG, 1 IN 1 D FOR 1 DAY
     Route: 058
     Dates: start: 20160715
  17. COLECALCIFEROL [Concomitant]
     Active Substance: CHOLECALCIFEROL
     Indication: VITAMIN D DEFICIENCY
     Dosage: UNK
     Route: 048
     Dates: start: 20160426
  18. ACICLOVIR [Concomitant]
     Active Substance: ACYCLOVIR
     Dosage: 800 MG (400 MG, 2 IN 1 D)
     Route: 048
     Dates: start: 20160525
  19. AZITHROMYCIN ANHYDROUS. [Concomitant]
     Active Substance: AZITHROMYCIN ANHYDROUS
     Indication: PNEUMONIA
     Dosage: 500 MG,1 IN 1 D
     Route: 048
     Dates: start: 20160607, end: 20160709

REACTIONS (5)
  - Pneumonia [Fatal]
  - Asthenia [Unknown]
  - Oedema [Unknown]
  - Cardiac failure [Fatal]
  - Pleural effusion [Not Recovered/Not Resolved]

NARRATIVE: CASE EVENT DATE: 20160719
